FAERS Safety Report 10347867 (Version 1)
Quarter: 2014Q3

REPORT INFORMATION
  Report Type: Spontaneous
  Country: US (occurrence: US)
  Receive Date: 20140729
  Receipt Date: 20140729
  Transmission Date: 20150326
  Serious: Yes (Other)
  Sender: FDA-Public Use
  Company Number: US-PFIZER INC-2014209422

PATIENT
  Age: 45 Year
  Sex: Female
  Weight: 102 kg

DRUGS (14)
  1. DETROPAN [Concomitant]
     Dosage: UNK
  2. BENADRYL [Concomitant]
     Active Substance: DIPHENHYDRAMINE HYDROCHLORIDE
     Dosage: UNK
  3. METFORMIN [Concomitant]
     Active Substance: METFORMIN HYDROCHLORIDE
     Dosage: UNK
  4. RISPERDAL [Concomitant]
     Active Substance: RISPERIDONE
     Dosage: UNK
  5. GLIPIZIDE. [Concomitant]
     Active Substance: GLIPIZIDE
     Dosage: UNK
  6. VISTARIL [Suspect]
     Active Substance: HYDROXYZINE PAMOATE
     Dosage: 100 MG, 1X/DAY
     Dates: start: 2010, end: 201308
  7. LISINOPRIL. [Concomitant]
     Active Substance: LISINOPRIL
     Dosage: UNK
  8. COATED ASPIRIN [Concomitant]
     Dosage: UNK
  9. VISTARIL [Suspect]
     Active Substance: HYDROXYZINE PAMOATE
     Dosage: 200 MG, 1X/DAY (AS TWO 100MG CAPSULES TO BE TAKEN TOGETHER AT NIGHT)
     Dates: start: 201308, end: 201310
  10. DEPAKOTE [Concomitant]
     Active Substance: DIVALPROEX SODIUM
     Dosage: UNK
  11. NEXIUM [Concomitant]
     Active Substance: ESOMEPRAZOLE MAGNESIUM
     Dosage: UNK
  12. FLEXERIL [Concomitant]
     Active Substance: CYCLOBENZAPRINE HYDROCHLORIDE
     Dosage: UNK
  13. NITROSTAT [Concomitant]
     Active Substance: NITROGLYCERIN
     Dosage: UNK
  14. NORVASC [Concomitant]
     Active Substance: AMLODIPINE BESYLATE
     Indication: HYPERTENSION
     Dosage: UNK

REACTIONS (5)
  - Flashback [Unknown]
  - Bipolar disorder [Unknown]
  - Post-traumatic stress disorder [Unknown]
  - Anxiety disorder [Unknown]
  - Nightmare [Unknown]
